FAERS Safety Report 25632248 (Version 1)
Quarter: 2025Q3

REPORT INFORMATION
  Report Type: Spontaneous
  Country: IN (occurrence: IN)
  Receive Date: 20250801
  Receipt Date: 20250801
  Transmission Date: 20251021
  Serious: Yes (Hospitalization)
  Sender: MYLAN
  Company Number: IN-MYLANLABS-2025M1065366

PATIENT
  Age: 45 Year
  Sex: Male

DRUGS (24)
  1. EFAVIRENZ [Suspect]
     Active Substance: EFAVIRENZ
     Indication: HIV infection
  2. EFAVIRENZ [Suspect]
     Active Substance: EFAVIRENZ
     Route: 065
  3. EFAVIRENZ [Suspect]
     Active Substance: EFAVIRENZ
     Route: 065
  4. EFAVIRENZ [Suspect]
     Active Substance: EFAVIRENZ
  5. LAMIVUDINE [Suspect]
     Active Substance: LAMIVUDINE
     Indication: HIV infection
  6. LAMIVUDINE [Suspect]
     Active Substance: LAMIVUDINE
     Route: 065
  7. LAMIVUDINE [Suspect]
     Active Substance: LAMIVUDINE
     Route: 065
  8. LAMIVUDINE [Suspect]
     Active Substance: LAMIVUDINE
  9. ZIDOVUDINE [Suspect]
     Active Substance: ZIDOVUDINE
     Indication: HIV infection
  10. ZIDOVUDINE [Suspect]
     Active Substance: ZIDOVUDINE
     Route: 065
  11. ZIDOVUDINE [Suspect]
     Active Substance: ZIDOVUDINE
     Route: 065
  12. ZIDOVUDINE [Suspect]
     Active Substance: ZIDOVUDINE
  13. AMLODIPINE [Suspect]
     Active Substance: AMLODIPINE BESYLATE
     Indication: Product used for unknown indication
  14. AMLODIPINE [Suspect]
     Active Substance: AMLODIPINE BESYLATE
     Route: 065
  15. AMLODIPINE [Suspect]
     Active Substance: AMLODIPINE BESYLATE
     Route: 065
  16. AMLODIPINE [Suspect]
     Active Substance: AMLODIPINE BESYLATE
  17. METFORMIN [Suspect]
     Active Substance: METFORMIN HYDROCHLORIDE
     Indication: Product used for unknown indication
  18. METFORMIN [Suspect]
     Active Substance: METFORMIN HYDROCHLORIDE
     Route: 065
  19. METFORMIN [Suspect]
     Active Substance: METFORMIN HYDROCHLORIDE
     Route: 065
  20. METFORMIN [Suspect]
     Active Substance: METFORMIN HYDROCHLORIDE
  21. TELMISARTAN [Suspect]
     Active Substance: TELMISARTAN
     Indication: Product used for unknown indication
  22. TELMISARTAN [Suspect]
     Active Substance: TELMISARTAN
     Route: 065
  23. TELMISARTAN [Suspect]
     Active Substance: TELMISARTAN
     Route: 065
  24. TELMISARTAN [Suspect]
     Active Substance: TELMISARTAN

REACTIONS (1)
  - Lipodystrophy acquired [Unknown]
